FAERS Safety Report 18042225 (Version 4)
Quarter: 2020Q4

REPORT INFORMATION
  Report Type: Report from Study
  Country: None (occurrence: FR)
  Receive Date: 20200720
  Receipt Date: 20201024
  Transmission Date: 20210113
  Serious: Yes (Death, Hospitalization, Other)
  Sender: FDA-Public Use
  Company Number: FR-ABBVIE-20K-056-3488869-00

PATIENT
  Sex: Male

DRUGS (3)
  1. DUODOPA [Suspect]
     Active Substance: CARBIDOPA\LEVODOPA
  2. DUODOPA [Suspect]
     Active Substance: CARBIDOPA\LEVODOPA
     Indication: PARKINSON^S DISEASE
     Route: 050
     Dates: start: 201909, end: 202007
  3. MODOPAR [Concomitant]
     Active Substance: BENSERAZIDE HYDROCHLORIDE\LEVODOPA
     Indication: PARKINSON^S DISEASE
     Dosage: 8:00, 12:00 AND 16:00
     Dates: start: 202007

REACTIONS (7)
  - Freezing phenomenon [Not Recovered/Not Resolved]
  - Hyperthermia [Not Recovered/Not Resolved]
  - Device breakage [Unknown]
  - Pyrexia [Not Recovered/Not Resolved]
  - Gait inability [Not Recovered/Not Resolved]
  - Intervertebral discitis [Unknown]
  - Staphylococcal infection [Fatal]

NARRATIVE: CASE EVENT DATE: 202007
